FAERS Safety Report 14730567 (Version 1)
Quarter: 2018Q2

REPORT INFORMATION
  Report Type: Spontaneous
  Country: CN (occurrence: CN)
  Receive Date: 20180406
  Receipt Date: 20180406
  Transmission Date: 20180711
  Serious: Yes (Hospitalization)
  Sender: FDA-Public Use
  Company Number: PHHY2018CN049332

PATIENT
  Age: 78 Year
  Sex: Female

DRUGS (2)
  1. MIACALCIC [Suspect]
     Active Substance: CALCITONIN SALMON
     Indication: OSTEOPOROSIS
     Dosage: 1 SPRAY , QD
     Route: 045
     Dates: start: 20171221, end: 20180316
  2. EXFORGE [Suspect]
     Active Substance: AMLODIPINE BESYLATE\VALSARTAN
     Indication: HYPERTENSION
     Dosage: 1 DF, QD
     Route: 048
     Dates: start: 20171018

REACTIONS (11)
  - Musculoskeletal pain [Not Recovered/Not Resolved]
  - Movement disorder [Unknown]
  - Asthenia [Recovering/Resolving]
  - Decreased appetite [Unknown]
  - Cough [Unknown]
  - Dyspnoea [Recovering/Resolving]
  - Spinal compression fracture [Unknown]
  - Back pain [Unknown]
  - Palpitations [Recovering/Resolving]
  - Insomnia [Unknown]
  - Arthralgia [Not Recovered/Not Resolved]
